FAERS Safety Report 10921457 (Version 1)
Quarter: 2015Q1

REPORT INFORMATION
  Report Type: Spontaneous
  Country: GB (occurrence: GB)
  Receive Date: 20150317
  Receipt Date: 20150317
  Transmission Date: 20150721
  Serious: Yes (Death, Hospitalization)
  Sender: FDA-Public Use
  Company Number: GB-CIPLA LTD.-2015GB02029

PATIENT

DRUGS (13)
  1. GEMCITABINE [Suspect]
     Active Substance: GEMCITABINE\GEMCITABINE HYDROCHLORIDE
     Indication: BLADDER CANCER
     Dosage: 2128 MG, UNK
     Route: 042
     Dates: start: 20150210, end: 20150210
  2. FENTANYL. [Concomitant]
     Active Substance: FENTANYL
  3. LEVOMEPROMAZINE [Concomitant]
     Active Substance: LEVOMEPROMAZINE
  4. OMEPRAZOLE. [Concomitant]
     Active Substance: OMEPRAZOLE
  5. CARBOPLATIN. [Suspect]
     Active Substance: CARBOPLATIN
     Indication: BLADDER CANCER
     Dosage: 350 MG, UNK
     Route: 042
     Dates: start: 20150210, end: 20150210
  6. ALFENTANIL [Concomitant]
     Active Substance: ALFENTANIL
  7. AMLODIPINE [Concomitant]
     Active Substance: AMLODIPINE BESYLATE
  8. GRANISETRON [Concomitant]
     Active Substance: GRANISETRON
  9. MACROGOL [Concomitant]
     Active Substance: POLYETHYLENE GLYCOLS
  10. METOCLOPRAMIDE. [Concomitant]
     Active Substance: METOCLOPRAMIDE
  11. PARACETAMOL [Concomitant]
     Active Substance: ACETAMINOPHEN
  12. BISACODYL. [Concomitant]
     Active Substance: BISACODYL
  13. DEXAMETHASONE. [Concomitant]
     Active Substance: DEXAMETHASONE

REACTIONS (9)
  - Pyrexia [Not Recovered/Not Resolved]
  - Dehydration [Not Recovered/Not Resolved]
  - Renal failure [Fatal]
  - Vomiting [Not Recovered/Not Resolved]
  - Toxicity to various agents [Fatal]
  - Hepatic failure [Fatal]
  - Nausea [Not Recovered/Not Resolved]
  - Thrombocytopenia [Recovering/Resolving]
  - Neutropenia [Recovering/Resolving]

NARRATIVE: CASE EVENT DATE: 20150211
